FAERS Safety Report 5563999-6 (Version None)
Quarter: 2007Q4

REPORT INFORMATION
  Report Type: 
  Country: None (occurrence: None)
  Receive Date: 20071217
  Receipt Date: 20071205
  Transmission Date: 20080405
  Serious: Yes (Other)
  Sender: FDA-Public Use
  Company Number: US-PFIZER INC-2007102990

PATIENT
  Sex: Female
  Weight: 77.1 kg

DRUGS (1)
  1. LYRICA [Suspect]
     Indication: PAIN

REACTIONS (5)
  - CEREBRAL THROMBOSIS [None]
  - DIZZINESS [None]
  - DRUG DOSE OMISSION [None]
  - HYPERSOMNIA [None]
  - VISION BLURRED [None]
